FAERS Safety Report 5773245-6 (Version None)
Quarter: 2008Q2

REPORT INFORMATION
  Report Type: 
  Country: None (occurrence: None)
  Receive Date: 20080613
  Receipt Date: 20080613
  Transmission Date: 20081010
  Serious: Yes (Life-Threatening, Hospitalization)
  Sender: FDA-Public Use
  Company Number: None

PATIENT
  Sex: Female
  Weight: 43.9989 kg

DRUGS (2)
  1. GEMCITABINE [Suspect]
     Indication: PANCREATIC CARCINOMA METASTATIC
     Dosage: 750MG/M2 Q 3 WK OUT OF 4 IV DRIP
     Route: 041
     Dates: start: 20080207, end: 20080516
  2. LAPATINIB [Suspect]
     Indication: PANCREATIC CARCINOMA METASTATIC
     Dosage: 1000MG DAILY PO
     Route: 048
     Dates: start: 20080207, end: 20080610

REACTIONS (4)
  - GASTRIC DISORDER [None]
  - INTESTINAL PERFORATION [None]
  - NO THERAPEUTIC RESPONSE [None]
  - OBSTRUCTION [None]
